FAERS Safety Report 22108315 (Version 1)
Quarter: 2023Q1

REPORT INFORMATION
  Report Type: Spontaneous
  Country: US (occurrence: None)
  Receive Date: 20230316
  Receipt Date: 20230316
  Transmission Date: 20230418
  Serious: Yes (Death)
  Sender: FDA-Public Use
  Company Number: None

PATIENT
  Age: 43 Year
  Sex: Female
  Weight: 72.6 kg

DRUGS (1)
  1. ACTIVASE [Suspect]
     Active Substance: ALTEPLASE
     Dates: start: 20230101

REACTIONS (2)
  - Cerebrovascular accident [None]
  - Angioedema [None]

NARRATIVE: CASE EVENT DATE: 20230101
